FAERS Safety Report 9756681 (Version 1)
Quarter: 2013Q4

REPORT INFORMATION
  Report Type: Spontaneous
  Country: JP (occurrence: JP)
  Receive Date: 20131213
  Receipt Date: 20131213
  Transmission Date: 20140711
  Serious: Yes (Death)
  Sender: FDA-Public Use
  Company Number: JP-MALLINCKRODT-T201305088

PATIENT
  Age: 60 Year
  Sex: Male
  Weight: 71.7 kg

DRUGS (23)
  1. METHADONE [Suspect]
     Indication: CANCER PAIN
     Dosage: 5 MG, (15 MG DAILY DOSE)
     Route: 048
     Dates: start: 20130523, end: 20130529
  2. METHADONE [Suspect]
     Dosage: 10 MG, (30 MG DAILY DOSE)
     Route: 048
     Dates: start: 20130530, end: 20130612
  3. METHADONE [Suspect]
     Dosage: 15 MG, (30 MG DAILY DOSE)
     Route: 048
     Dates: start: 20130613, end: 20130701
  4. METHADONE [Suspect]
     Dosage: 20 MG, (40 MG DAILY DOSE)
     Route: 048
     Dates: start: 20130702, end: 20130721
  5. METHADONE [Suspect]
     Dosage: 25 MG, (50 MG DAILY DOSE)
     Route: 048
     Dates: start: 20130722, end: 20130908
  6. OXYCONTIN [Suspect]
     Indication: PRODUCT USED FOR UNKNOWN INDICATION
     Dosage: 320 MG, UNK
     Route: 048
     Dates: start: 20130523, end: 20130529
  7. OXYCONTIN [Suspect]
     Dosage: 160 MG, UNK
     Route: 048
     Dates: start: 20130530, end: 20130530
  8. OXYCONTIN [Suspect]
     Dosage: 80 MG, UNK
     Route: 048
     Dates: start: 20130530, end: 20130822
  9. OXINORM                            /00045603/ [Concomitant]
     Dosage: 40 MG, PRN
     Route: 048
     Dates: start: 20130522
  10. OXINORM                            /00045603/ [Concomitant]
     Dosage: UNK
  11. LYRICA [Concomitant]
     Dosage: 50 MG, UNK
     Route: 048
     Dates: start: 20130508, end: 20130514
  12. LYRICA [Concomitant]
     Dosage: 100 UNK, UNK
     Route: 048
     Dates: start: 20130515
  13. RINDERON                           /00008501/ [Concomitant]
     Dosage: 8 MG, UNK
     Route: 048
     Dates: start: 20130604, end: 20130611
  14. RINDERON                           /00008501/ [Concomitant]
     Dosage: 6 MG, UNK
     Route: 048
     Dates: start: 20130612, end: 20130613
  15. RINDERON                           /00008501/ [Concomitant]
     Dosage: 4 MG, UNK
     Route: 048
     Dates: start: 20130614, end: 20130822
  16. RINDERON                           /00008501/ [Concomitant]
     Dosage: 8 MG, UNK
     Route: 048
     Dates: start: 20130824, end: 20130909
  17. MORPHINE HYDROCHLORIDE [Concomitant]
     Dosage: 12 MG, UNK
     Route: 051
     Dates: start: 20130823, end: 20130824
  18. MORPHINE HYDROCHLORIDE [Concomitant]
     Dosage: 24 MG, UNK
     Route: 051
     Dates: start: 20130824, end: 20130825
  19. MORPHINE HYDROCHLORIDE [Concomitant]
     Dosage: 48 MG, UNK
     Route: 051
     Dates: start: 20130825, end: 20130827
  20. MORPHINE HYDROCHLORIDE [Concomitant]
     Dosage: 84 MG, UNK
     Route: 051
     Dates: start: 20130827, end: 20130829
  21. MORPHINE HYDROCHLORIDE [Concomitant]
     Dosage: 120 MG, UNK
     Route: 051
     Dates: start: 20130829, end: 20130903
  22. MORPHINE HYDROCHLORIDE [Concomitant]
     Dosage: 168 MG, UNK
     Route: 051
     Dates: start: 20130903, end: 20130904
  23. MORPHINE HYDROCHLORIDE [Concomitant]
     Dosage: 192 MG, UNK
     Route: 051
     Dates: start: 20130904, end: 20130909

REACTIONS (2)
  - Pancreatic carcinoma [Fatal]
  - Altered state of consciousness [Recovering/Resolving]
